FAERS Safety Report 7146570-4 (Version None)
Quarter: 2010Q4

REPORT INFORMATION
  Report Type: 
  Country: None (occurrence: None)
  Receive Date: 20101208
  Receipt Date: 20101202
  Transmission Date: 20110411
  Serious: Yes (Other)
  Sender: FDA-Public Use
  Company Number: PL-ABBOTT-10P-129-0683285-00

PATIENT
  Age: 55 Year
  Sex: Male
  Weight: 85 kg

DRUGS (3)
  1. HUMIRA [Suspect]
     Indication: RHEUMATOID ARTHRITIS
     Dosage: 3 DOSES OF 40 MG EVERY 2 WEEKS
     Route: 058
     Dates: start: 20100610, end: 20100708
  2. ETANERCEPT [Suspect]
     Indication: RHEUMATOID ARTHRITIS
     Route: 058
     Dates: start: 20091201, end: 20100501
  3. METHYLPREDNISOLONE [Concomitant]
     Indication: RHEUMATOID ARTHRITIS
     Dosage: 4-8 MG A DAY
     Route: 048
     Dates: start: 20050101

REACTIONS (3)
  - BRACHIAL PLEXUS INJURY [None]
  - HERPES ZOSTER [None]
  - PARESIS [None]
